FAERS Safety Report 5095209-0 (Version None)
Quarter: 2006Q3

REPORT INFORMATION
  Report Type: 
  Country: None (occurrence: None)
  Receive Date: 20060901
  Receipt Date: 20060828
  Transmission Date: 20061208
  Serious: Yes (Hospitalization)
  Sender: FDA-Public Use
  Company Number: JP-JPN-A200603394

PATIENT
  Age: 75 Year
  Sex: Male

DRUGS (1)
  1. VALTREX [Suspect]
     Indication: DRUG USE FOR UNKNOWN INDICATION
     Dosage: 1000MG THREE TIMES PER DAY
     Route: 048
     Dates: start: 20060825, end: 20060827

REACTIONS (3)
  - CREATININE RENAL CLEARANCE DECREASED [None]
  - NAUSEA [None]
  - RENAL DISORDER [None]
